FAERS Safety Report 14393971 (Version 1)
Quarter: 2018Q1

REPORT INFORMATION
  Report Type: Spontaneous
  Country: US (occurrence: US)
  Receive Date: 20180116
  Receipt Date: 20180116
  Transmission Date: 20180509
  Serious: Yes (Other)
  Sender: FDA-Public Use
  Company Number: US-REGENERON PHARMACEUTICALS, INC.-2017-12121

PATIENT

DRUGS (1)
  1. EYLEA [Suspect]
     Active Substance: AFLIBERCEPT
     Indication: AGE-RELATED MACULAR DEGENERATION
     Dosage: RIGHT EYE (OD), LAST DOSE PRIOR TO EVENT
     Dates: start: 20170113, end: 20170113

REACTIONS (1)
  - Endophthalmitis [Unknown]

NARRATIVE: CASE EVENT DATE: 20170115
